FAERS Safety Report 15962928 (Version 2)
Quarter: 2019Q2

REPORT INFORMATION
  Report Type: Report from Study
  Country: US (occurrence: US)
  Receive Date: 20190214
  Receipt Date: 20190506
  Transmission Date: 20190711
  Serious: Yes (Hospitalization, Other)
  Sender: FDA-Public Use
  Company Number: US-GILEAD-2019-0390747

PATIENT
  Age: 65 Year
  Sex: Female
  Weight: 80.73 kg

DRUGS (2)
  1. AMBRISENTAN [Suspect]
     Active Substance: AMBRISENTAN
     Indication: PRODUCT USED FOR UNKNOWN INDICATION
     Dosage: 5 MG QD
     Route: 065
     Dates: end: 20190206
  2. REMODULIN [Suspect]
     Active Substance: TREPROSTINIL
     Indication: PULMONARY ARTERIAL HYPERTENSION
     Dosage: 58 NANOGRAM PER KILOGRAM
     Route: 042
     Dates: start: 20170630

REACTIONS (10)
  - Polyuria [Unknown]
  - Rales [Unknown]
  - Heart rate irregular [Unknown]
  - Weight increased [Unknown]
  - Haemoglobin decreased [Unknown]
  - Dyspnoea [Unknown]
  - Hypotension [Unknown]
  - Oxygen saturation [Unknown]
  - Oedema [Unknown]
  - Haematochezia [Unknown]

NARRATIVE: CASE EVENT DATE: 201902
